FAERS Safety Report 17968789 (Version 2)
Quarter: 2021Q2

REPORT INFORMATION
  Report Type: Spontaneous
  Country: US (occurrence: US)
  Receive Date: 20200701
  Receipt Date: 20210421
  Transmission Date: 20210717
  Serious: No
  Sender: FDA-Public Use
  Company Number: US-SA-2020SA164102

PATIENT
  Sex: Female

DRUGS (14)
  1. NUVIGIL [Concomitant]
     Active Substance: ARMODAFINIL
  2. MINOCYCLINE HCL [Concomitant]
     Active Substance: MINOCYCLINE HYDROCHLORIDE
  3. GABAPENTIN. [Concomitant]
     Active Substance: GABAPENTIN
  4. CLONAZEPAM. [Concomitant]
     Active Substance: CLONAZEPAM
  5. TIZANIDINE. [Concomitant]
     Active Substance: TIZANIDINE
  6. AUBAGIO [Suspect]
     Active Substance: TERIFLUNOMIDE
     Indication: PRODUCT USED FOR UNKNOWN INDICATION
     Dosage: 14 MG, QD (1 TABLET)
     Route: 048
  7. SMZ?TMP DS [Concomitant]
     Active Substance: SULFAMETHOXAZOLE\TRIMETHOPRIM
  8. FLUOXETINE [Concomitant]
     Active Substance: FLUOXETINE HYDROCHLORIDE
  9. ATENOLOL. [Concomitant]
     Active Substance: ATENOLOL
  10. BENAZEPRIL [Concomitant]
     Active Substance: BENAZEPRIL HYDROCHLORIDE
  11. BUSPIRONE [Concomitant]
     Active Substance: BUSPIRONE HYDROCHLORIDE
  12. ZOHYDRO [Concomitant]
     Active Substance: HYDROCODONE BITARTRATE
  13. PRIMIDONE. [Concomitant]
     Active Substance: PRIMIDONE
  14. VENLAFAXINE [Concomitant]
     Active Substance: VENLAFAXINE HYDROCHLORIDE

REACTIONS (2)
  - Memory impairment [Unknown]
  - Product dose omission issue [Unknown]
